FAERS Safety Report 14028195 (Version 1)
Quarter: 2017Q3

REPORT INFORMATION
  Report Type: Spontaneous
  Country: US (occurrence: US)
  Receive Date: 20170930
  Receipt Date: 20170930
  Transmission Date: 20171128
  Serious: Yes (Life-Threatening, Disabling)
  Sender: FDA-Public Use
  Company Number: None

PATIENT
  Age: 25 Year
  Sex: Male
  Weight: 78.75 kg

DRUGS (7)
  1. DIVALPROEX DELAYED RELEASE [Suspect]
     Active Substance: DIVALPROEX SODIUM
     Indication: OBSESSIVE-COMPULSIVE DISORDER
     Dates: start: 20170305, end: 20170930
  2. DIVALPROEX DELAYED RELEASE [Suspect]
     Active Substance: DIVALPROEX SODIUM
     Indication: ANXIETY
     Dates: start: 20170305, end: 20170930
  3. OLANZAPINE. [Concomitant]
     Active Substance: OLANZAPINE
  4. DEPAKOTE [Concomitant]
     Active Substance: DIVALPROEX SODIUM
  5. DIVALPROEX DELAYED RELEASE [Suspect]
     Active Substance: DIVALPROEX SODIUM
     Indication: ANXIETY
     Dates: start: 20170305, end: 20170930
  6. DIVALPROEX DELAYED RELEASE [Suspect]
     Active Substance: DIVALPROEX SODIUM
     Indication: OBSESSIVE-COMPULSIVE DISORDER
     Dates: start: 20170305, end: 20170930
  7. ABILITY ARISTATA [Concomitant]

REACTIONS (16)
  - Alopecia [None]
  - Movement disorder [None]
  - Dyspnoea [None]
  - Discomfort [None]
  - Abdominal discomfort [None]
  - Sleep paralysis [None]
  - Dyskinesia [None]
  - Hot flush [None]
  - Nausea [None]
  - Dehydration [None]
  - Facial pain [None]
  - Skin tightness [None]
  - Suicidal ideation [None]
  - Eye pain [None]
  - Dry eye [None]
  - Paralysis [None]

NARRATIVE: CASE EVENT DATE: 20170913
